FAERS Safety Report 13490002 (Version 1)
Quarter: 2017Q2

REPORT INFORMATION
  Report Type: Spontaneous
  Country: US (occurrence: US)
  Receive Date: 20170427
  Receipt Date: 20170427
  Transmission Date: 20170830
  Serious: No
  Sender: FDA-Public Use
  Company Number: US-BAYER-2017-079347

PATIENT
  Age: 69 Year
  Sex: Female

DRUGS (1)
  1. GADAVIST [Suspect]
     Active Substance: GADOBUTROL
     Indication: NUCLEAR MAGNETIC RESONANCE IMAGING BRAIN
     Dosage: 11.5 ML, ONCE
     Dates: start: 20160425

REACTIONS (5)
  - Chest discomfort [Unknown]
  - Hypotension [Unknown]
  - Pallor [Unknown]
  - Rash macular [Unknown]
  - Dizziness [Unknown]

NARRATIVE: CASE EVENT DATE: 20170425
